FAERS Safety Report 6696381-9 (Version None)
Quarter: 2010Q2

REPORT INFORMATION
  Report Type: 
  Country: None (occurrence: None)
  Receive Date: 20100426
  Receipt Date: 20100421
  Transmission Date: 20101027
  Serious: Yes (Hospitalization)
  Sender: FDA-Public Use
  Company Number: NO-ROCHE-677091

PATIENT
  Sex: Female
  Weight: 64 kg

DRUGS (7)
  1. PEGINTERFERON ALFA-2A [Suspect]
     Indication: HEPATITIS C
     Route: 065
     Dates: start: 20091007, end: 20091110
  2. PEGINTERFERON ALFA-2A [Suspect]
     Dosage: PERMANENTLY DISCONTIUED
     Route: 065
     Dates: start: 20091111, end: 20091229
  3. RIBAVIRIN [Suspect]
     Indication: HEPATITIS C
     Dosage: DOSE: 400+600 MG; PERMANENTLY DISCONTIUED
     Route: 048
     Dates: start: 20091007, end: 20091229
  4. BLINDED TMC435 [Suspect]
     Indication: HEPATITIS C
     Dosage: DOSE BLINDED; PERMANENTLY DISCONTIUED
     Route: 048
     Dates: start: 20091007, end: 20091229
  5. DESOGESTREL [Concomitant]
     Dates: start: 20090929
  6. SUMATRIPTAN SUCCINATE [Concomitant]
     Indication: MIGRAINE
  7. TRIMETHOPRIM [Concomitant]
     Indication: URINARY TRACT INFECTION
     Dates: start: 20091006, end: 20091009

REACTIONS (1)
  - CUTANEOUS VASCULITIS [None]
